FAERS Safety Report 11972814 (Version 1)
Quarter: 2016Q1

REPORT INFORMATION
  Report Type: Spontaneous
  Country: US (occurrence: US)
  Receive Date: 20160128
  Receipt Date: 20160128
  Transmission Date: 20160526
  Serious: No
  Sender: FDA-Public Use
  Company Number: US-BAYER-2016-017377

PATIENT
  Age: 77 Year
  Sex: Female

DRUGS (1)
  1. CLIMARA [Suspect]
     Active Substance: ESTRADIOL

REACTIONS (3)
  - Dermatitis contact [Not Recovered/Not Resolved]
  - Pruritus [Not Recovered/Not Resolved]
  - Application site rash [Not Recovered/Not Resolved]
